FAERS Safety Report 6416141-3 (Version None)
Quarter: 2009Q4

REPORT INFORMATION
  Report Type: 
  Country: None (occurrence: None)
  Receive Date: 20091027
  Receipt Date: 20091022
  Transmission Date: 20100525
  Serious: Yes (Hospitalization)
  Sender: FDA-Public Use
  Company Number: BE-NAPPMUNDI-GBR-2009-0005626

PATIENT
  Sex: Male

DRUGS (7)
  1. MORPHINE SULFATE [Suspect]
     Indication: PAIN
     Dosage: 120 MG, DAILY
     Route: 048
     Dates: start: 20090824
  2. RAD001 [Suspect]
     Indication: TRANSITIONAL CELL CARCINOMA
     Dosage: UNK
     Dates: start: 20090902
  3. RAD001 [Suspect]
     Dosage: 10 MG, DAILY
     Route: 048
     Dates: start: 20090824, end: 20090831
  4. MORPHINE [Suspect]
     Indication: PAIN
     Dosage: UNK
     Route: 058
     Dates: start: 20090831
  5. DURAGESIC-100 [Suspect]
     Indication: PAIN
     Dosage: UNK
     Route: 062
     Dates: start: 20090824
  6. VOLTAREN [Concomitant]
     Dosage: UNK
     Dates: start: 20090831
  7. DEXAMETHASONE SODIUM PHOSPHATE [Concomitant]

REACTIONS (1)
  - CONSTIPATION [None]
